FAERS Safety Report 12647517 (Version 1)
Quarter: 2016Q3

REPORT INFORMATION
  Report Type: Spontaneous
  Country: FR (occurrence: FR)
  Receive Date: 20160812
  Receipt Date: 20160812
  Transmission Date: 20161109
  Serious: Yes (Life-Threatening)
  Sender: FDA-Public Use
  Company Number: PHHY2016FR110673

PATIENT
  Age: 67 Year
  Sex: Female

DRUGS (5)
  1. EXJADE [Suspect]
     Active Substance: DEFERASIROX
     Indication: HYPERFERRITINAEMIA
     Dosage: 2 DF, QD (500 MG TWICE IN THE MORNING)
     Route: 048
     Dates: start: 201603, end: 201605
  2. BISOCE [Suspect]
     Active Substance: BISOPROLOL
     Indication: PRODUCT USED FOR UNKNOWN INDICATION
     Dosage: 1.25 MG, QD (IN THE MORNING)
     Route: 048
     Dates: end: 20160518
  3. VALSARTAN. [Concomitant]
     Active Substance: VALSARTAN
     Indication: PRODUCT USED FOR UNKNOWN INDICATION
     Dosage: 80 MG, QD (80 MG IN THE MORNING)
     Route: 048
     Dates: end: 201605
  4. VIDAZA [Suspect]
     Active Substance: AZACITIDINE
     Indication: ACUTE MYELOID LEUKAEMIA
     Dosage: UNK UNK, QMO
     Route: 058
     Dates: start: 201512, end: 20160330
  5. CRESTOR [Concomitant]
     Active Substance: ROSUVASTATIN CALCIUM
     Indication: PRODUCT USED FOR UNKNOWN INDICATION
     Dosage: 20 MG, QD (20 MG IN THE EVENING)
     Route: 048

REACTIONS (1)
  - Gastrointestinal ulcer perforation [Recovered/Resolved with Sequelae]

NARRATIVE: CASE EVENT DATE: 20160330
